FAERS Safety Report 14284823 (Version 1)
Quarter: 2017Q4

REPORT INFORMATION
  Report Type: Spontaneous
  Country: US (occurrence: US)
  Receive Date: 20171214
  Receipt Date: 20171214
  Transmission Date: 20180321
  Serious: Yes (Life-Threatening)
  Sender: FDA-Public Use
  Company Number: None

PATIENT
  Age: 43 Year
  Sex: Male
  Weight: 53.3 kg

DRUGS (1)
  1. ALEVE [Suspect]
     Active Substance: NAPROXEN SODIUM
     Indication: MYALGIA
     Route: 048
     Dates: start: 20171102, end: 20171103

REACTIONS (3)
  - Necrotising fasciitis [None]
  - Exposure to communicable disease [None]
  - Toxic shock syndrome streptococcal [None]

NARRATIVE: CASE EVENT DATE: 20171106
